FAERS Safety Report 6337327 (Version 2)
Quarter: 2020Q3

REPORT INFORMATION
  Report Type: Spontaneous
  Country: JP (occurrence: JP)
  Receive Date: 20070620
  Receipt Date: 20070705
  Transmission Date: 20201104
  Serious: Yes (Death, Other)
  Sender: FDA-Public Use
  Company Number: JP-BAYER-200710427BYL

PATIENT
  Age: 70 Year
  Sex: Male
  Weight: 60 kg

DRUGS (57)
  1. ZOPICLONE [Suspect]
     Active Substance: ZOPICLONE
     Indication: INSOMNIA
     Dosage: TOTAL DAILY DOSE: 7.5 MG  UNIT DOSE: 7.5 MG
     Route: 048
     Dates: start: 20060920, end: 20060920
  2. FLUNITRAZEPAM [Suspect]
     Active Substance: FLUNITRAZEPAM
     Indication: INSOMNIA
     Dosage: TOTAL DAILY DOSE: 1 MG  UNIT DOSE: 1 MG
     Route: 048
     Dates: start: 20060918, end: 20060919
  3. LANSOPRAZOLE. [Suspect]
     Active Substance: LANSOPRAZOLE
     Dosage: TOTAL DAILY DOSE: 30 MG  UNIT DOSE: 15 MG
     Route: 048
     Dates: start: 20060906, end: 20060929
  4. LOXONIN [Suspect]
     Active Substance: LOXOPROFEN SODIUM
     Indication: INTERCOSTAL NEURALGIA
     Dosage: TOTAL DAILY DOSE: 180 MG  UNIT DOSE: 60 MG
     Route: 048
     Dates: start: 20060923, end: 20060924
  5. FLOMOXEF [Suspect]
     Active Substance: FLOMOXEF
     Indication: INFECTION
     Dosage: TOTAL DAILY DOSE: 2  G  UNIT DOSE: 1 G
     Route: 042
     Dates: start: 20060917, end: 20060917
  6. SOLU?MEDROL [Concomitant]
     Active Substance: METHYLPREDNISOLONE SODIUM SUCCINATE
     Indication: ASTHMA
     Dosage: TOTAL DAILY DOSE: 125 MG  UNIT DOSE: 125 MG
     Route: 042
     Dates: start: 20060920, end: 20060921
  7. POTASSIUM CHLORIDE\SODIUM CHLORIDE\SODIUM LACTATE [Concomitant]
     Active Substance: POTASSIUM CHLORIDE\SODIUM CHLORIDE\SODIUM LACTATE
     Indication: FLUID REPLACEMENT
     Dosage: TOTAL DAILY DOSE: 1000 ML  UNIT DOSE: 500 ML
     Route: 042
     Dates: start: 20060823, end: 20060823
  8. NAPROXEN. [Suspect]
     Active Substance: NAPROXEN
     Indication: PYREXIA
     Dosage: TOTAL DAILY DOSE: 300 MG  UNIT DOSE: 100 MG
     Route: 048
     Dates: start: 20060920, end: 20060926
  9. LOXONIN [Suspect]
     Active Substance: LOXOPROFEN SODIUM
     Dosage: TOTAL DAILY DOSE: 180 MG  UNIT DOSE: 60 MG
     Route: 048
     Dates: start: 20060918, end: 20060920
  10. MALTOSE ANHYDROUS\POTASSIUM CHLORIDE\SODIUM CHLORIDE\SODIUM LACTATE [Suspect]
     Active Substance: MALTOSE ANHYDROUS\POTASSIUM CHLORIDE\SODIUM CHLORIDE\SODIUM LACTATE
     Dosage: TOTAL DAILY DOSE: 500 ML  UNIT DOSE: 500 ML
     Route: 042
     Dates: start: 20060831, end: 20060911
  11. TEPRENONE [Concomitant]
     Active Substance: TEPRENONE
     Indication: GASTRITIS
     Dosage: TOTAL DAILY DOSE: 50 MG  UNIT DOSE: 50 MG
     Route: 048
     Dates: start: 20060924, end: 20060924
  12. SENNOSIDE [Concomitant]
     Active Substance: SENNOSIDES
     Indication: CONSTIPATION
     Dosage: TOTAL DAILY DOSE: 24 MG  UNIT DOSE: 12 MG
     Route: 048
     Dates: start: 20060822, end: 20060822
  13. BROMHEXINE HYDROCHLORIDE [Concomitant]
     Active Substance: BROMHEXINE HYDROCHLORIDE
     Route: 042
     Dates: start: 20060829, end: 20060904
  14. CERCINE [Suspect]
     Active Substance: DIAZEPAM
     Indication: SEIZURE PROPHYLAXIS
     Dosage: TOTAL DAILY DOSE: 2 MG  UNIT DOSE: 2 MG
     Route: 048
     Dates: start: 20060924, end: 20060926
  15. ZOPICLONE [Suspect]
     Active Substance: ZOPICLONE
     Dosage: TOTAL DAILY DOSE: 7.5 MG  UNIT DOSE: 7.5 MG
     Route: 048
     Dates: start: 20060922, end: 20060923
  16. UNSPECIFIED INGREDIENT [Suspect]
     Active Substance: UNSPECIFIED INGREDIENT
     Indication: SPUTUM RETENTION
     Dosage: TOTAL DAILY DOSE: 1200 MG  UNIT DOSE: 200 MG
     Dates: start: 20060914, end: 20060924
  17. VOLTAREN [Suspect]
     Active Substance: DICLOFENAC SODIUM
     Dosage: TOTAL DAILY DOSE: 25 MG  UNIT DOSE: 25 MG
     Route: 054
     Dates: start: 20060904, end: 20060923
  18. AMINOTRIPA NO.1 [Concomitant]
     Indication: NUTRITIONAL SUPPLEMENTATION
     Dosage: TOTAL DAILY DOSE: 1700 ML  UNIT DOSE: 850 ML
     Route: 042
     Dates: start: 20060824, end: 20060825
  19. AMINOTRIPA NO.2 [Concomitant]
     Indication: NUTRITIONAL SUPPLEMENTATION
     Dosage: TOTAL DAILY DOSE: 1800 ML  UNIT DOSE: 900 ML
     Route: 042
     Dates: start: 20060825, end: 20060830
  20. UNSPECIFIED INGREDIENT [Concomitant]
     Active Substance: UNSPECIFIED INGREDIENT
     Indication: FLUID REPLACEMENT
     Dosage: TOTAL DAILY DOSE: 500 ML  UNIT DOSE: 500 ML
     Route: 042
     Dates: start: 20060925, end: 20060926
  21. PAZUFLOXACIN [Concomitant]
     Active Substance: PAZUFLOXACIN
     Indication: INFECTION
     Dosage: TOTAL DAILY DOSE: 1000 MG  UNIT DOSE: 500 MG
     Route: 042
     Dates: start: 20060920, end: 20060920
  22. FLUNITRAZEPAM [Suspect]
     Active Substance: FLUNITRAZEPAM
     Dosage: TOTAL DAILY DOSE: 1 MG  UNIT DOSE: 1 MG
     Route: 048
     Dates: start: 20060923, end: 20060926
  23. FLUNITRAZEPAM [Suspect]
     Active Substance: FLUNITRAZEPAM
     Dosage: TOTAL DAILY DOSE: 1 MG  UNIT DOSE: 1 MG
     Route: 048
     Dates: start: 20060913, end: 20060915
  24. DISTIGMINE BROMIDE [Suspect]
     Active Substance: DISTIGMINE BROMIDE
     Indication: NEUROGENIC BLADDER
     Dosage: TOTAL DAILY DOSE: 10 MG  UNIT DOSE: 5 MG
     Route: 048
     Dates: start: 20060908, end: 20060929
  25. VOLTAREN [Suspect]
     Active Substance: DICLOFENAC SODIUM
     Dosage: TOTAL DAILY DOSE: 50 MG  UNIT DOSE: 50 MG
     Route: 054
     Dates: start: 20060920, end: 20060922
  26. MYSLEE [Suspect]
     Active Substance: ZOLPIDEM TARTRATE
     Dosage: TOTAL DAILY DOSE: 5 MG  UNIT DOSE: 5 MG
     Route: 048
     Dates: start: 20060831, end: 20060831
  27. POLARAMINE [Concomitant]
     Active Substance: DEXCHLORPHENIRAMINE MALEATE
     Indication: PRURITUS
     Dosage: TOTAL DAILY DOSE: 2 MG  UNIT DOSE: 2 MG
     Route: 048
     Dates: start: 20060923, end: 20060923
  28. MOBIC [Concomitant]
     Active Substance: MELOXICAM
     Indication: WOUND COMPLICATION
     Dosage: TOTAL DAILY DOSE: 10 MG  UNIT DOSE: 10 MG
     Route: 048
     Dates: start: 20060824, end: 20060824
  29. BROMHEXINE HYDROCHLORIDE [Concomitant]
     Active Substance: BROMHEXINE HYDROCHLORIDE
     Indication: SPUTUM RETENTION
     Route: 042
     Dates: start: 20060824, end: 20060824
  30. FLUNITRAZEPAM [Suspect]
     Active Substance: FLUNITRAZEPAM
     Dosage: TOTAL DAILY DOSE: 1 MG  UNIT DOSE: 1 MG
     Route: 048
     Dates: start: 20060921, end: 20060921
  31. VOLTAREN [Suspect]
     Active Substance: DICLOFENAC SODIUM
     Dosage: TOTAL DAILY DOSE: 50 MG  UNIT DOSE: 50 MG
     Route: 054
     Dates: start: 20060917, end: 20060917
  32. TEGRETOL [Suspect]
     Active Substance: CARBAMAZEPINE
     Indication: WOUND COMPLICATION
     Dosage: TOTAL DAILY DOSE: 100 MG  UNIT DOSE: 100 MG
     Route: 048
     Dates: start: 20060922, end: 20060923
  33. HUMULIN R [Concomitant]
     Active Substance: INSULIN HUMAN
     Indication: HYPERGLYCAEMIA
     Dosage: UNIT DOSE: 300 IU
     Route: 042
     Dates: start: 20060823, end: 20060824
  34. OMEPRAZOLE. [Concomitant]
     Active Substance: OMEPRAZOLE
     Indication: PROPHYLAXIS AGAINST GASTROINTESTINAL ULCER
     Dosage: TOTAL DAILY DOSE: 40 MG  UNIT DOSE: 20 MG
     Route: 042
     Dates: start: 20060824, end: 20060830
  35. FINIBAX [Concomitant]
     Indication: INFECTION
     Dosage: TOTAL DAILY DOSE: 0.5 G  UNIT DOSE: 0.25 G
     Route: 042
     Dates: start: 20060919, end: 20060920
  36. NICARDIPINE HYDROCHLORIDE. [Concomitant]
     Active Substance: NICARDIPINE HYDROCHLORIDE
     Indication: HYPERTENSION
     Route: 042
     Dates: start: 20060824, end: 20060824
  37. LOW MOLECULAR WEIGHT DEXTRAN [Concomitant]
     Active Substance: DEXTRAN
     Indication: FLUID REPLACEMENT
     Dosage: TOTAL DAILY DOSE: 250 ML  UNIT DOSE: 250 ML
     Route: 042
     Dates: start: 20060824, end: 20060825
  38. MAGNESIUM OXIDE. [Suspect]
     Active Substance: MAGNESIUM OXIDE
     Indication: CONSTIPATION
     Dosage: TOTAL DAILY DOSE: 990 MG  UNIT DOSE: 330 MG
     Route: 048
     Dates: start: 20060829, end: 20060926
  39. ZOPICLONE [Suspect]
     Active Substance: ZOPICLONE
     Dosage: TOTAL DAILY DOSE: 7.5 MG  UNIT DOSE: 7.5 MG
     Route: 048
     Dates: start: 20060925, end: 20060925
  40. PHENOBARBITAL SODIUM. [Suspect]
     Active Substance: PHENOBARBITAL SODIUM
     Indication: SEIZURE PROPHYLAXIS
     Dosage: TOTAL DAILY DOSE: 200 MG  UNIT DOSE: 100 MG
     Route: 054
     Dates: start: 20060825, end: 20060828
  41. MYSLEE [Suspect]
     Active Substance: ZOLPIDEM TARTRATE
     Dosage: TOTAL DAILY DOSE: 5 MG  UNIT DOSE: 5 MG
     Route: 048
     Dates: start: 20060923, end: 20060923
  42. KETOPROFEN. [Concomitant]
     Active Substance: KETOPROFEN
     Indication: WOUND COMPLICATION
     Route: 062
     Dates: start: 20060917
  43. SODIUM PICOSULFATE [Concomitant]
     Active Substance: SODIUM PICOSULFATE
     Indication: CONSTIPATION
     Route: 062
     Dates: start: 20060902
  44. ALBUMIN [Concomitant]
     Active Substance: ALBUMIN HUMAN
     Indication: SHOCK
     Dosage: TOTAL DAILY DOSE: 100 ML  UNIT DOSE: 50 ML
     Route: 042
     Dates: start: 20060824, end: 20060824
  45. ANAPEINE [Concomitant]
     Active Substance: ROPIVACAINE HYDROCHLORIDE
     Indication: WOUND COMPLICATION
     Dosage: TOTAL DAILY DOSE: 200 MG  UNIT DOSE: 200 MG
     Route: 042
     Dates: start: 20060824, end: 20060826
  46. MULTI VITAMIN INFUSION [Concomitant]
     Active Substance: .ALPHA.-TOCOPHEROL\.ALPHA.-TOCOPHEROL ACETATE, DL-\ASCORBIC ACID\BIOTIN\CYANOCOBALAMIN\DEXPANTHENOL\ERGOCALCIFEROL\FOLIC ACID\NIACINAMIDE\PYRIDOXINE HYDROCHLORIDE\RETINOL\RIBOFLAVIN 5^-PHOSPHATE SODIUM\THIAMINE
     Route: 042
     Dates: start: 20060824, end: 20060830
  47. PHENOBARBITAL. [Suspect]
     Active Substance: PHENOBARBITAL
     Indication: SEIZURE PROPHYLAXIS
     Dosage: TOTAL DAILY DOSE: 100 MG  UNIT DOSE: 100 MG
     Route: 048
     Dates: start: 20060828, end: 20060923
  48. VOLTAREN [Suspect]
     Active Substance: DICLOFENAC SODIUM
     Indication: WOUND COMPLICATION
     Dosage: TOTAL DAILY DOSE: 25 MG  UNIT DOSE: 25 MG
     Route: 054
     Dates: start: 20060824, end: 20060824
  49. MALTOSE ANHYDROUS\POTASSIUM CHLORIDE\SODIUM CHLORIDE\SODIUM LACTATE [Suspect]
     Active Substance: MALTOSE ANHYDROUS\POTASSIUM CHLORIDE\SODIUM CHLORIDE\SODIUM LACTATE
     Indication: FLUID REPLACEMENT
     Dosage: TOTAL DAILY DOSE: 500 ML  UNIT DOSE: 500 ML
     Route: 042
     Dates: start: 20060824, end: 20060824
  50. EDARAVONE [Suspect]
     Active Substance: EDARAVONE
     Indication: CEREBRAL INFARCTION
     Dosage: TOTAL DAILY DOSE: 60 MG  UNIT DOSE: 30 MG
     Route: 042
     Dates: start: 20060824, end: 20060903
  51. RINDERON VG [Concomitant]
     Active Substance: BETAMETHASONE VALERATE\GENTAMICIN SULFATE
     Indication: RASH
     Route: 062
     Dates: start: 20060918
  52. CATACLOT [Concomitant]
     Indication: CEREBRAL INFARCTION
     Dosage: TOTAL DAILY DOSE: 80 MG  UNIT DOSE: 20 MG
     Route: 042
     Dates: start: 20060824, end: 20060824
  53. CEFOTIAM HYDROCHLORIDE [Concomitant]
     Active Substance: CEFOTIAM HYDROCHLORIDE
     Indication: INFECTION PROPHYLAXIS
     Dosage: TOTAL DAILY DOSE: 1 G  UNIT DOSE: 1 G
     Route: 042
     Dates: start: 20060824, end: 20060826
  54. BAYASPIRIN [Suspect]
     Active Substance: ASPIRIN
     Indication: CEREBROVASCULAR ACCIDENT PROPHYLAXIS
     Dosage: TOTAL DAILY DOSE: 100 MG  UNIT DOSE: 100 MG
     Route: 048
     Dates: start: 20060830, end: 20060930
  55. LANSOPRAZOLE. [Suspect]
     Active Substance: LANSOPRAZOLE
     Indication: GASTRIC ULCER
     Dosage: TOTAL DAILY DOSE: 30 MG  UNIT DOSE: 15 MG
     Route: 048
     Dates: start: 20060824, end: 20060824
  56. MYSLEE [Suspect]
     Active Substance: ZOLPIDEM TARTRATE
     Indication: INSOMNIA
     Dosage: TOTAL DAILY DOSE: 5 MG  UNIT DOSE: 5 MG
     Route: 048
     Dates: start: 20060822, end: 20060822
  57. HEPARIN [Concomitant]
     Active Substance: HEPARIN SODIUM
     Indication: TRANSFUSION
     Route: 042
     Dates: start: 20060824, end: 20060827

REACTIONS (15)
  - Stevens-Johnson syndrome [Fatal]
  - Pneumonia [None]
  - Cardiac arrest [None]
  - Pleural effusion [None]
  - Pleurisy [None]
  - Therapy non-responder [None]
  - Hepatitis [None]
  - Liver disorder [Unknown]
  - Cerebral infarction [None]
  - Post procedural complication [None]
  - Staphylococcal sepsis [None]
  - Shock [None]
  - Sepsis [Fatal]
  - Granulocytopenia [None]
  - Haemodialysis [None]

NARRATIVE: CASE EVENT DATE: 20060830
